FAERS Safety Report 5488235-0 (Version None)
Quarter: 2007Q4

REPORT INFORMATION
  Report Type: 
  Country: None (occurrence: None)
  Receive Date: 20071017
  Receipt Date: 20071011
  Transmission Date: 20080405
  Serious: Yes (Other)
  Sender: FDA-Public Use
  Company Number: B0491276A

PATIENT
  Sex: Female

DRUGS (1)
  1. NIQUITIN CQ LOZENGE [Suspect]
     Route: 002

REACTIONS (1)
  - DRUG DEPENDENCE [None]
